FAERS Safety Report 4855117-4 (Version None)
Quarter: 2005Q4

REPORT INFORMATION
  Report Type: 
  Country: None (occurrence: None)
  Receive Date: 20051214
  Receipt Date: 20051201
  Transmission Date: 20060501
  Serious: Yes (Disabling, Other)
  Sender: FDA-Public Use
  Company Number: 2005163500

PATIENT
  Age: 75 Year
  Sex: Female
  Weight: 87.0906 kg

DRUGS (9)
  1. NEURONTIN [Suspect]
     Indication: NEUROPATHY
     Dosage: 1200 MG (400 MG, 3 IN 1 D),
     Dates: end: 20051001
  2. LYRICA [Suspect]
     Indication: NEUROPATHY
     Dosage: 150 MG (50 MG, 3 IN 1 D),
     Dates: start: 20051001
  3. LORTAB [Concomitant]
  4. PREMARIN [Concomitant]
  5. NORVASC [Concomitant]
  6. MONOPRIL [Concomitant]
  7. PLAVIX [Concomitant]
  8. ASPIRIN [Concomitant]
  9. XANAX [Concomitant]

REACTIONS (9)
  - BUNION [None]
  - CARDIAC STRESS TEST ABNORMAL [None]
  - CATARACT [None]
  - CHRONIC FATIGUE SYNDROME [None]
  - CORONARY ARTERY OCCLUSION [None]
  - PAIN [None]
  - TOE DEFORMITY [None]
  - URINARY INCONTINENCE [None]
  - VISION BLURRED [None]
